FAERS Safety Report 16583021 (Version 2)
Quarter: 2019Q3

REPORT INFORMATION
  Report Type: Spontaneous
  Country: US (occurrence: US)
  Receive Date: 20190717
  Receipt Date: 20190725
  Transmission Date: 20191004
  Serious: No
  Sender: FDA-Public Use
  Company Number: US-PFIZER INC-2019299614

PATIENT
  Age: 62 Year
  Sex: Female

DRUGS (1)
  1. XELJANZ XR [Suspect]
     Active Substance: TOFACITINIB CITRATE
     Dosage: 1 MG, UNK
     Dates: start: 20180620, end: 20190701

REACTIONS (3)
  - Arthralgia [Unknown]
  - Skin disorder [Unknown]
  - Drug ineffective [Unknown]
